FAERS Safety Report 21594379 (Version 1)
Quarter: 2022Q4

REPORT INFORMATION
  Report Type: Other
  Country: IN (occurrence: None)
  Receive Date: 20221115
  Receipt Date: 20221115
  Transmission Date: 20230113
  Serious: Yes (Hospitalization)
  Sender: FDA-Public Use
  Company Number: IN-ROCHE-3218435

PATIENT
  Age: 61 Year
  Sex: Male

DRUGS (1)
  1. TECENTRIQ [Suspect]
     Active Substance: ATEZOLIZUMAB
     Indication: Transitional cell carcinoma metastatic
     Route: 042
     Dates: start: 20220214

REACTIONS (2)
  - Pneumonia [Unknown]
  - Lower respiratory tract infection [Unknown]
